FAERS Safety Report 23141069 (Version 1)
Quarter: 2023Q4

REPORT INFORMATION
  Report Type: Spontaneous
  Country: US (occurrence: US)
  Receive Date: 20231103
  Receipt Date: 20231103
  Transmission Date: 20240109
  Serious: No
  Sender: FDA-Public Use
  Company Number: US-002147023-NVSC2023US235241

PATIENT

DRUGS (1)
  1. LEQVIO [Suspect]
     Active Substance: INCLISIRAN SODIUM
     Indication: High density lipoprotein
     Dosage: 284 MG
     Route: 058
     Dates: start: 20230801, end: 20231101

REACTIONS (1)
  - Abdominal discomfort [Recovered/Resolved]
